FAERS Safety Report 18755087 (Version 1)
Quarter: 2021Q1

REPORT INFORMATION
  Report Type: Spontaneous
  Country: US (occurrence: US)
  Receive Date: 20210115
  Receipt Date: 20210115
  Transmission Date: 20210419
  Serious: No
  Sender: FDA-Public Use
  Company Number: None

PATIENT
  Age: 40 Year
  Sex: Female
  Weight: 94.3 kg

DRUGS (4)
  1. IMDEVIMAB. [Suspect]
     Active Substance: IMDEVIMAB
     Indication: COVID-19
     Dosage: ?          OTHER FREQUENCY:ONCE;?
     Route: 040
  2. DIPHENHYDRAMINE 25MG PO [Concomitant]
     Dates: start: 20210113, end: 20210113
  3. CASIRIVIMAB. [Suspect]
     Active Substance: CASIRIVIMAB
     Indication: COVID-19
     Dosage: ?          OTHER FREQUENCY:ONCE;?
     Route: 040
  4. ACETAMINOPHEN 500MG PO [Concomitant]
     Dates: start: 20210113, end: 20210113

REACTIONS (1)
  - Pruritus [None]

NARRATIVE: CASE EVENT DATE: 20210113
